FAERS Safety Report 10129292 (Version 1)
Quarter: 2014Q2

REPORT INFORMATION
  Report Type: Spontaneous
  Country: US (occurrence: US)
  Receive Date: 20140428
  Receipt Date: 20140428
  Transmission Date: 20141212
  Serious: No
  Sender: FDA-Public Use
  Company Number: US-ABBVIE-14P-163-1204896-00

PATIENT
  Sex: Female
  Weight: 52.21 kg

DRUGS (3)
  1. ANDROGEL 1.62% [Suspect]
     Indication: UNEVALUABLE INVESTIGATION
     Route: 062
     Dates: start: 2011
  2. ESTROGEN [Concomitant]
     Indication: HORMONE REPLACEMENT THERAPY
  3. BIOIDENTICAL TESTOSTERONE [Concomitant]
     Indication: HORMONE REPLACEMENT THERAPY
     Dosage: OCCASIONALLY TAKING

REACTIONS (2)
  - Accidental exposure to product [Recovering/Resolving]
  - Acne [Recovering/Resolving]
